FAERS Safety Report 8759236 (Version 3)
Quarter: 2012Q4

REPORT INFORMATION
  Report Type: 
  Country: US (occurrence: US)
  Receive Date: 20120829
  Receipt Date: 20121004
  Transmission Date: 20130627
  Serious: Yes (Other)
  Sender: FDA-Public Use
  Company Number: US-BAYER-2012-076831

PATIENT
  Sex: Male

DRUGS (2)
  1. CIPRO [Suspect]
     Indication: EYE INFECTION
     Dosage: UNK
     Dates: start: 20120704
  2. CIPRO [Suspect]
     Indication: LOCALISED INFECTION

REACTIONS (6)
  - Prostatic specific antigen increased [Recovered/Resolved]
  - Oral mucosal eruption [Recovered/Resolved]
  - Nocturia [Recovered/Resolved]
  - Urinary retention [None]
  - Insomnia [Recovered/Resolved]
  - Dry mouth [None]
